FAERS Safety Report 5492933-2 (Version None)
Quarter: 2007Q4

REPORT INFORMATION
  Report Type: 
  Country: None (occurrence: None)
  Receive Date: 20071016
  Receipt Date: 20071003
  Transmission Date: 20080405
  Serious: Yes (Other)
  Sender: FDA-Public Use
  Company Number: CHNY2007GB03366

PATIENT
  Age: 1 Year

DRUGS (1)
  1. OTRIVIN [Suspect]
     Dosage: VIA FALSA
     Dates: start: 20071003

REACTIONS (1)
  - ACCIDENTAL DRUG INTAKE BY CHILD [None]
